FAERS Safety Report 19650616 (Version 1)
Quarter: 2021Q3

REPORT INFORMATION
  Report Type: Spontaneous
  Country: US (occurrence: US)
  Receive Date: 20210802
  Receipt Date: 20210802
  Transmission Date: 20211014
  Serious: No
  Sender: FDA-Public Use
  Company Number: None

PATIENT
  Age: 72 Year
  Sex: Male

DRUGS (3)
  1. WARFARIN WARFARIN NA EXELAN 5MG TAB) [Suspect]
     Active Substance: WARFARIN SODIUM
     Indication: MITRAL VALVE REPLACEMENT
     Route: 048
     Dates: start: 20040101
  2. WARFARIN WARFARIN NA EXELAN 5MG TAB) [Suspect]
     Active Substance: WARFARIN SODIUM
     Indication: ATRIAL FIBRILLATION
     Route: 048
     Dates: start: 20040101
  3. ENOXAPARIN (ENOXAPARIN 100MG/ML INJ, SYRINGE, 1ML) [Suspect]
     Active Substance: ENOXAPARIN SODIUM
     Route: 058
     Dates: start: 20210504, end: 20210506

REACTIONS (3)
  - Haematoma [None]
  - Post procedural haematoma [None]
  - Haemorrhage [None]

NARRATIVE: CASE EVENT DATE: 20210520
